FAERS Safety Report 13353530 (Version 1)
Quarter: 2017Q1

REPORT INFORMATION
  Report Type: Spontaneous
  Country: US (occurrence: US)
  Receive Date: 20170321
  Receipt Date: 20170321
  Transmission Date: 20170429
  Serious: Yes (Other)
  Sender: FDA-Public Use
  Company Number: US-ZYDUS-014216

PATIENT
  Age: 25 Year
  Sex: Female

DRUGS (2)
  1. AZATHIOPRINE. [Suspect]
     Active Substance: AZATHIOPRINE
     Indication: HYPEREOSINOPHILIC SYNDROME
     Route: 048
     Dates: start: 201305, end: 2013
  2. PREDNISONE. [Suspect]
     Active Substance: PREDNISONE
     Indication: HYPEREOSINOPHILIC SYNDROME
     Route: 048

REACTIONS (6)
  - Tachycardia [Unknown]
  - Drug hypersensitivity [Unknown]
  - Pyrexia [Unknown]
  - Idiosyncratic drug reaction [Unknown]
  - Neutrophilia [Unknown]
  - Hypotension [Unknown]
